FAERS Safety Report 6849957-X (Version None)
Quarter: 2010Q3

REPORT INFORMATION
  Report Type: 
  Country: None (occurrence: None)
  Receive Date: 20100716
  Receipt Date: 20080118
  Transmission Date: 20110219
  Serious: Yes (Other)
  Sender: FDA-Public Use
  Company Number: US-PFIZER INC-2007086045

PATIENT
  Sex: Female
  Weight: 70.3 kg

DRUGS (3)
  1. CHANTIX [Suspect]
     Indication: SMOKING CESSATION THERAPY
     Dates: start: 20070901
  2. AMITRIPTYLINE HYDROCHLORIDE [Concomitant]
     Indication: NEURALGIA
  3. PAXIL [Concomitant]

REACTIONS (3)
  - CONSTIPATION [None]
  - POLLAKIURIA [None]
  - URINE OUTPUT INCREASED [None]
